FAERS Safety Report 20681744 (Version 1)
Quarter: 2022Q2

REPORT INFORMATION
  Report Type: Spontaneous
  Country: NL (occurrence: NL)
  Receive Date: 20220406
  Receipt Date: 20220406
  Transmission Date: 20220720
  Serious: Yes (Other)
  Sender: FDA-Public Use
  Company Number: NL-LRB-00797298

PATIENT
  Age: 62 Year
  Sex: Female
  Weight: 52 kg

DRUGS (4)
  1. OLANZAPINE [Suspect]
     Active Substance: OLANZAPINE
     Indication: Major depression
     Dosage: 10 MILLIGRAM, DAILY, 1X PER DAY 10MG
     Route: 065
  2. PARACETAMOL CAPSULE 500MG / Brand name not specified PARACETAMOL CAP [Concomitant]
     Indication: Product used for unknown indication
     Dosage: CAPSULE, 500 MG (MILLIGRAM) ()
     Route: 065
  3. LORAZEPAM DRANK 1MG/ML / Brand name not specified LORAZEPAM DRANK 1M [Concomitant]
     Indication: Product used for unknown indication
     Dosage: DRANK, 1 MG/ML (MILLIGRAM PER MILLILITER) ()
     Route: 065
  4. HALOPERIDOL DRANK 2MG/ML / Brand name not specified HALOPERIDOL DRAN [Concomitant]
     Indication: Product used for unknown indication
     Dosage: DRANK, 2 MG/ML (MILLIGRAM PER MILLILITER) ()
     Route: 065

REACTIONS (1)
  - Parkinsonism [Recovered/Resolved]

NARRATIVE: CASE EVENT DATE: 20220213
